FAERS Safety Report 11464390 (Version 3)
Quarter: 2015Q3

REPORT INFORMATION
  Report Type: Spontaneous
  Country: US (occurrence: US)
  Receive Date: 20150831
  Receipt Date: 20150903
  Transmission Date: 20151125
  Serious: No
  Sender: FDA-Public Use
  Company Number: US-ELI_LILLY_AND_COMPANY-US201108000653

PATIENT
  Age: 44 Year
  Sex: Male
  Weight: 86.17 kg

DRUGS (2)
  1. CYMBALTA [Suspect]
     Active Substance: DULOXETINE HYDROCHLORIDE
     Indication: PAIN
     Dosage: 30 MG, SINGLE
     Dates: start: 20110725, end: 20110726
  2. DOXEPIN [Concomitant]
     Active Substance: DOXEPIN

REACTIONS (4)
  - Tremor [Unknown]
  - Hypersensitivity [Recovered/Resolved]
  - Fatigue [Unknown]
  - Formication [Recovered/Resolved]

NARRATIVE: CASE EVENT DATE: 20110725
